FAERS Safety Report 22108366 (Version 1)
Quarter: 2023Q1

REPORT INFORMATION
  Report Type: Spontaneous
  Country: US (occurrence: US)
  Receive Date: 20230317
  Receipt Date: 20230317
  Transmission Date: 20230418
  Serious: No
  Sender: FDA-Public Use
  Company Number: US-LEO Pharma-350298

PATIENT
  Sex: Female

DRUGS (1)
  1. ADBRY [Suspect]
     Active Substance: TRALOKINUMAB-LDRM
     Indication: Dermatitis atopic
     Dosage: DOSAGE : 300 MG SUBCUTANEOUSLY EVERY 2 WEEKS
     Route: 058
     Dates: start: 202207

REACTIONS (2)
  - Skin discolouration [Unknown]
  - Injection site pruritus [Unknown]
